FAERS Safety Report 9096175 (Version 1)
Quarter: 2013Q1

REPORT INFORMATION
  Report Type: Spontaneous
  Country: US (occurrence: US)
  Receive Date: 20130207
  Receipt Date: 20130207
  Transmission Date: 20140127
  Serious: No
  Sender: FDA-Public Use
  Company Number: US-009507513-1302USA001354

PATIENT
  Age: 21 Year
  Sex: Female
  Weight: 79.37 kg

DRUGS (1)
  1. IMPLANON [Suspect]
     Dosage: 1 DF

REACTIONS (1)
  - Implant site scar [Unknown]
